FAERS Safety Report 6718617-8 (Version None)
Quarter: 2010Q2

REPORT INFORMATION
  Report Type: 
  Country: None (occurrence: None)
  Receive Date: 20100510
  Receipt Date: 20100428
  Transmission Date: 20101027
  Serious: Yes (Hospitalization)
  Sender: FDA-Public Use
  Company Number: FR-MERCK-1004FRA00135

PATIENT
  Age: 23 Year
  Sex: Male

DRUGS (11)
  1. PRIMAXIN [Suspect]
     Indication: ABSCESS
     Route: 042
     Dates: start: 20081222, end: 20090112
  2. VANCOMYCIN [Suspect]
     Indication: ABSCESS
     Route: 042
     Dates: start: 20081222, end: 20090112
  3. AMINO ACIDS (UNSPECIFIED) AND DEXTROSE AND ELECTROLYTES (UNSPECIFIED) [Suspect]
     Indication: PARENTERAL NUTRITION
     Route: 042
     Dates: start: 20081228, end: 20090207
  4. TRANXENE [Concomitant]
     Indication: ANXIETY
     Route: 042
     Dates: start: 20081222, end: 20090123
  5. LOVENOX [Concomitant]
     Route: 058
     Dates: start: 20081224
  6. SPECIAFOLDINE [Concomitant]
     Route: 048
     Dates: start: 20081223
  7. CACIT [Concomitant]
     Route: 048
     Dates: start: 20081227
  8. SOLU-MEDROL [Concomitant]
     Indication: CROHN'S DISEASE
     Route: 048
     Dates: start: 20080811
  9. TRIFLUCAN [Concomitant]
     Indication: RASH
     Route: 048
     Dates: start: 20090106, end: 20090118
  10. TRIFLUCAN [Concomitant]
     Route: 048
     Dates: start: 20090119, end: 20090130
  11. AERIUS [Concomitant]
     Indication: RASH
     Route: 048
     Dates: start: 20090107

REACTIONS (1)
  - CYTOLYTIC HEPATITIS [None]
